FAERS Safety Report 7555033-3 (Version None)
Quarter: 2011Q2

REPORT INFORMATION
  Report Type: 
  Country: None (occurrence: None)
  Receive Date: 20110617
  Receipt Date: 20110610
  Transmission Date: 20111010
  Serious: Yes (Other)
  Sender: FDA-Public Use
  Company Number: JP-PFIZER INC-2011123015

PATIENT
  Age: 6 Year
  Sex: Male

DRUGS (3)
  1. SEVOFLURANE [Suspect]
     Indication: GENERAL ANAESTHESIA
     Dosage: 1%-3%
     Route: 055
  2. KETAMINE HYDROCHLORIDE [Concomitant]
     Dosage: 20 MG, UNK
     Route: 042
  3. PREDNISOLONE [Concomitant]
     Dosage: 20 MG, 1X/DAY

REACTIONS (1)
  - HYPOVENTILATION [None]
